FAERS Safety Report 9905456 (Version 5)
Quarter: 2014Q4

REPORT INFORMATION
  Report Type: Spontaneous
  Country: US (occurrence: US)
  Receive Date: 20140218
  Receipt Date: 20141226
  Transmission Date: 20150529
  Serious: Yes (Death, Hospitalization, Other)
  Sender: FDA-Public Use
  Company Number: US-GLAXOSMITHKLINE-A0787927A

PATIENT
  Sex: Female
  Weight: 100.5 kg

DRUGS (1)
  1. AVANDIA [Suspect]
     Active Substance: ROSIGLITAZONE MALEATE
     Indication: DIABETES MELLITUS
     Route: 048
     Dates: start: 200107, end: 200605

REACTIONS (18)
  - Supraventricular tachycardia [Unknown]
  - Cardio-respiratory arrest [Fatal]
  - Cerebrovascular accident [Unknown]
  - Pulmonary hypertension [Unknown]
  - Respiratory failure [Unknown]
  - Delirium [Unknown]
  - Pneumonia [Unknown]
  - Cardiomyopathy [Unknown]
  - Atrial flutter [Unknown]
  - Myocardial infarction [Unknown]
  - Oedema peripheral [Unknown]
  - Hemiparesis [Unknown]
  - Cardiovascular disorder [Unknown]
  - Cardiac failure congestive [Unknown]
  - Cardiac disorder [Unknown]
  - Pleural effusion [Unknown]
  - Atrial fibrillation [Unknown]
  - Sinus node dysfunction [Unknown]
